FAERS Safety Report 20594234 (Version 1)
Quarter: 2022Q1

REPORT INFORMATION
  Report Type: Spontaneous
  Country: US (occurrence: US)
  Receive Date: 20220315
  Receipt Date: 20220315
  Transmission Date: 20220423
  Serious: No
  Sender: FDA-Public Use
  Company Number: US-SA-SAC20220308001292

PATIENT
  Sex: Female

DRUGS (1)
  1. SEVELAMER HYDROCHLORIDE [Suspect]
     Active Substance: SEVELAMER HYDROCHLORIDE
     Dosage: UNK

REACTIONS (5)
  - Catheter site erythema [Unknown]
  - Catheter site pruritus [Unknown]
  - Catheter site irritation [Unknown]
  - Blood phosphorus increased [Unknown]
  - Dermatitis contact [Unknown]
